FAERS Safety Report 9800901 (Version 2)
Quarter: 2014Q1

REPORT INFORMATION
  Report Type: Spontaneous
  Country: AU (occurrence: AU)
  Receive Date: 20140107
  Receipt Date: 20140123
  Transmission Date: 20141002
  Serious: Yes (Hospitalization)
  Sender: FDA-Public Use
  Company Number: AU-UCBSA-107665

PATIENT
  Age: 68 Year
  Sex: Female

DRUGS (1)
  1. CIMZIA [Suspect]
     Indication: RHEUMATOID ARTHRITIS
     Route: 058
     Dates: start: 20131213

REACTIONS (3)
  - Fall [Recovering/Resolving]
  - Foot fracture [Recovering/Resolving]
  - Contusion [Recovered/Resolved]
